FAERS Safety Report 6128074-0 (Version None)
Quarter: 2009Q1

REPORT INFORMATION
  Report Type: 
  Country: None (occurrence: None)
  Receive Date: 20090320
  Receipt Date: 20090320
  Transmission Date: 20090719
  Serious: Yes (Hospitalization, Disabling)
  Sender: FDA-Public Use
  Company Number: None

PATIENT
  Sex: Female

DRUGS (2)
  1. FOSAMAX [Suspect]
     Indication: OSTEOPOROSIS
     Dosage: 70 MG WEEKLY ORAL
     Route: 048
     Dates: start: 19970101, end: 20050101
  2. FORTEO [Concomitant]

REACTIONS (2)
  - BONE DISORDER [None]
  - FISTULA [None]
